FAERS Safety Report 6949223-8 (Version None)
Quarter: 2010Q3

REPORT INFORMATION
  Report Type: 
  Country: None (occurrence: None)
  Receive Date: 20100828
  Receipt Date: 20091207
  Transmission Date: 20110219
  Serious: No
  Sender: FDA-Public Use
  Company Number: US-ABBOTT-09P-163-0613971-00

PATIENT
  Sex: Female
  Weight: 111.23 kg

DRUGS (9)
  1. NIASPAN [Suspect]
     Indication: BLOOD CHOLESTEROL INCREASED
     Dates: start: 20000301
  2. DIOVAN [Concomitant]
     Indication: HYPERTENSION
  3. LIPITOR [Concomitant]
     Indication: BLOOD CHOLESTEROL INCREASED
     Dosage: EVERY NIGHT
  4. FUROSEMIDE [Concomitant]
     Indication: HYPERTENSION
     Dosage: EVERY MORNING
  5. POTASSIUM [Concomitant]
     Indication: PRODUCT USED FOR UNKNOWN INDICATION
  6. CALCIUM [Concomitant]
     Indication: PRODUCT USED FOR UNKNOWN INDICATION
  7. AVANDAMET [Concomitant]
     Indication: DIABETES MELLITUS
     Dosage: WITH DINNER
  8. VOLTAREN [Concomitant]
     Indication: ARTHRITIS
  9. ARIMIDEX [Concomitant]
     Indication: BREAST CANCER
     Dates: start: 20050304

REACTIONS (7)
  - COUGH [None]
  - FEELING ABNORMAL [None]
  - GASTROOESOPHAGEAL REFLUX DISEASE [None]
  - OESOPHAGITIS [None]
  - RETCHING [None]
  - VOCAL CORD INFLAMMATION [None]
  - VOMITING [None]
